FAERS Safety Report 7208625-5 (Version None)
Quarter: 2011Q1

REPORT INFORMATION
  Report Type: 
  Country: None (occurrence: None)
  Receive Date: 20110104
  Receipt Date: 20101228
  Transmission Date: 20110831
  Serious: Yes (Life-Threatening, Hospitalization, Other)
  Sender: FDA-Public Use
  Company Number: JP-ROCHE-747541

PATIENT
  Sex: Male
  Weight: 53.2 kg

DRUGS (23)
  1. OCRELIZUMAB [Suspect]
     Route: 042
     Dates: start: 20080925
  2. PREDNISOLONE [Suspect]
     Route: 065
     Dates: start: 20101108
  3. METFORMIN HYDROCHLORIDE [Concomitant]
     Dates: start: 20070612
  4. DONEPEZIL HYDROCHLORIDE [Concomitant]
     Dates: start: 20081120
  5. OLMESARTAN MEDOXOMIL [Concomitant]
     Dates: start: 20090114
  6. LOXOPROFEN SODIUM [Concomitant]
     Dosage: FREQUENCY: AS NEEDED
     Dates: start: 20080311
  7. TOCILIZUMAB [Suspect]
     Indication: RHEUMATOID ARTHRITIS
     Route: 065
     Dates: start: 20100317
  8. OCRELIZUMAB [Suspect]
     Route: 042
     Dates: start: 20081009
  9. FOLIC ACID [Concomitant]
     Dates: start: 20070320
  10. CORTICOSTEROIDS [Concomitant]
     Route: 048
  11. TOCILIZUMAB [Suspect]
     Route: 065
     Dates: start: 20101013
  12. OCRELIZUMAB [Suspect]
     Indication: RHEUMATOID ARTHRITIS
     Route: 042
     Dates: start: 20090827, end: 20090910
  13. CARBOCISTEINE [Concomitant]
     Dates: start: 20100421
  14. YOKUKANSAN [Concomitant]
     Dates: start: 20100915
  15. TOCILIZUMAB [Suspect]
     Route: 065
     Dates: start: 20100915
  16. TOCILIZUMAB [Suspect]
     Route: 065
     Dates: start: 20101117
  17. PROPIVERINE HYDROCHLORIDE [Concomitant]
  18. TOCILIZUMAB [Suspect]
     Route: 065
     Dates: start: 20100818
  19. OCRELIZUMAB [Suspect]
     Route: 042
     Dates: start: 20090312
  20. OCRELIZUMAB [Suspect]
     Route: 042
     Dates: start: 20090326
  21. METHOTREXATE [Suspect]
     Route: 065
     Dates: start: 20080705
  22. VOGLIBOSE [Concomitant]
     Dates: start: 20070612
  23. OMEPRAZOLE [Concomitant]

REACTIONS (3)
  - PERITONITIS [None]
  - LARGE INTESTINE CARCINOMA [None]
  - GASTROINTESTINAL PERFORATION [None]
